FAERS Safety Report 8768933 (Version 1)
Quarter: 2012Q4

REPORT INFORMATION
  Report Type: 
  Country: US (occurrence: US)
  Receive Date: 20120904
  Receipt Date: 20120904
  Transmission Date: 20130627
  Serious: No
  Sender: FDA-Public Use
  Company Number: US-009507513-1208USA012033

PATIENT

DRUGS (4)
  1. HYZAAR [Suspect]
     Indication: HYPERTENSION
     Dosage: UNK
     Route: 048
  2. SYNTHROID [Concomitant]
  3. LEVOTHYROXINE SODIUM [Concomitant]
  4. METOPROLOL [Concomitant]

REACTIONS (1)
  - Myalgia [Not Recovered/Not Resolved]
